FAERS Safety Report 11190122 (Version 2)
Quarter: 2015Q3

REPORT INFORMATION
  Report Type: Spontaneous
  Country: KR (occurrence: KR)
  Receive Date: 20150615
  Receipt Date: 20150701
  Transmission Date: 20151125
  Serious: Yes (Death, Hospitalization, Other)
  Sender: FDA-Public Use
  Company Number: KR-OTSUKA-2015_003378

PATIENT
  Age: 78 Year
  Sex: Male
  Weight: 56.3 kg

DRUGS (16)
  1. DACOGEN [Suspect]
     Active Substance: DECITABINE
     Dosage: 20 MG/M2, 1 IN 1 DAY
     Route: 042
     Dates: start: 20150112, end: 20150116
  2. SMECTA [Concomitant]
     Active Substance: MONTMORILLONITE
     Indication: DIARRHOEA
     Dosage: ,2 IN 1 DAY
     Route: 065
     Dates: start: 20141214, end: 20141218
  3. NITROGLYCERINE [Concomitant]
     Active Substance: NITROGLYCERIN
     Indication: CHEST DISCOMFORT
     Dosage: ,1 IN 1 DAY
     Route: 060
     Dates: start: 20150215, end: 20150215
  4. DACOGEN [Suspect]
     Active Substance: DECITABINE
     Dosage: 20 MG/M2, 1 IN 1 DAY
     Route: 042
     Dates: start: 20150209, end: 20150213
  5. ULTRACET [Concomitant]
     Active Substance: ACETAMINOPHEN\TRAMADOL HYDROCHLORIDE
     Indication: PAIN MANAGEMENT
     Dosage: ,2 IN 2 DAY
     Route: 048
     Dates: start: 20150401, end: 20150610
  6. LEGALON [Concomitant]
     Active Substance: MILK THISTLE
     Indication: HEPATIC ENZYME INCREASED
     Dosage: 140 MG, 3 IN 1 DAY
     Route: 048
     Dates: start: 20150209, end: 20150217
  7. CRAVIT [Concomitant]
     Active Substance: LEVOFLOXACIN
     Indication: ANTIBIOTIC PROPHYLAXIS
     Dosage: ,1 IN 1 MONTH
     Route: 048
     Dates: start: 20141218, end: 20150610
  8. DACOGEN [Suspect]
     Active Substance: DECITABINE
     Dosage: 20 MG/M2, 1 IN 1 DAY
     Route: 042
     Dates: start: 20150407, end: 20150411
  9. MYONAL [Concomitant]
     Active Substance: EPERISONE HYDROCHLORIDE
     Indication: BACK PAIN
     Dosage: ,3 IN 1 DAY
     Route: 048
     Dates: start: 20150401, end: 20150610
  10. MORPHINE HYDROCHLORIDE [Concomitant]
     Active Substance: MORPHINE HYDROCHLORIDE
     Indication: PAIN MANAGEMENT
     Dosage: 20 MG, 1 IN 1 DAY
     Route: 042
     Dates: start: 20150518, end: 20150528
  11. REMICUT [Concomitant]
     Indication: RASH
     Dosage: ,2 IN 1 DAY
     Route: 048
     Dates: start: 20150211, end: 20150217
  12. DACOGEN [Suspect]
     Active Substance: DECITABINE
     Indication: ACUTE MYELOID LEUKAEMIA
     Dosage: 20 MG/M2, 1 IN 1 DAY
     Route: 042
     Dates: start: 20141211, end: 20141215
  13. DACOGEN [Suspect]
     Active Substance: DECITABINE
     Dosage: 20 MG/M2, 1 IN 1 DAY
     Route: 042
     Dates: start: 20150310, end: 20150314
  14. DACOGEN [Suspect]
     Active Substance: DECITABINE
     Dosage: 20 MG/M2, 1 IN 1 DAY
     Route: 042
     Dates: start: 20150505, end: 20150509
  15. HARNAL [Concomitant]
     Active Substance: TAMSULOSIN HYDROCHLORIDE
     Indication: URINARY INCONTINENCE
     Dosage: ,1 IN 1 DAY
     Route: 048
     Dates: start: 20150127
  16. SPORANOX [Concomitant]
     Active Substance: ITRACONAZOLE\SODIUM CHLORIDE
     Indication: ANTIFUNGAL PROPHYLAXIS
     Dosage: ,2 IN 1 DAY
     Route: 065
     Dates: start: 20141211, end: 20141230

REACTIONS (2)
  - Lumbar vertebral fracture [Recovered/Resolved]
  - Pneumonia aspiration [Fatal]

NARRATIVE: CASE EVENT DATE: 20150401
